FAERS Safety Report 25802542 (Version 1)
Quarter: 2025Q3

REPORT INFORMATION
  Report Type: Spontaneous
  Country: US (occurrence: US)
  Receive Date: 20250915
  Receipt Date: 20250915
  Transmission Date: 20251021
  Serious: No
  Sender: SANOFI AVENTIS
  Company Number: US-SA-2025SA273562

PATIENT
  Age: 46 Year
  Sex: Female

DRUGS (2)
  1. KEVZARA [Suspect]
     Active Substance: SARILUMAB
     Indication: Axial spondyloarthritis
     Dosage: 200 MG, QOW
     Route: 058
     Dates: start: 2023
  2. COSENTYX [Concomitant]
     Active Substance: SECUKINUMAB

REACTIONS (3)
  - Axial spondyloarthritis [Unknown]
  - Condition aggravated [Unknown]
  - Product use in unapproved indication [Unknown]

NARRATIVE: CASE EVENT DATE: 20230101
